FAERS Safety Report 10721312 (Version 1)
Quarter: 2015Q1

REPORT INFORMATION
  Report Type: Report from Study
  Country: US (occurrence: US)
  Receive Date: 20150119
  Receipt Date: 20150119
  Transmission Date: 20150721
  Serious: Yes (Death)
  Sender: FDA-Public Use
  Company Number: US-ACTELION-A-NJ2015-111049

PATIENT
  Age: 72 Year
  Sex: Female

DRUGS (2)
  1. MACITENTAN [Suspect]
     Active Substance: MACITENTAN
     Indication: PULMONARY ARTERIAL HYPERTENSION
     Dosage: 10 MG, QD
     Route: 048
     Dates: start: 20131218
  2. REVATIO [Concomitant]
     Active Substance: SILDENAFIL CITRATE

REACTIONS (1)
  - Death [Fatal]
